FAERS Safety Report 7234246-4 (Version None)
Quarter: 2011Q1

REPORT INFORMATION
  Report Type: 
  Country: None (occurrence: None)
  Receive Date: 20110119
  Receipt Date: 20110110
  Transmission Date: 20110831
  Serious: Yes (Hospitalization, Other)
  Sender: FDA-Public Use
  Company Number: PHHO2010US17444

PATIENT
  Sex: Male
  Weight: 84.8 kg

DRUGS (3)
  1. CERTICAN [Suspect]
     Indication: RENAL TRANSPLANT
     Dosage: 0.75 MG, BID
     Route: 048
     Dates: start: 20101008
  2. PREDNISONE [Concomitant]
     Indication: RENAL TRANSPLANT
     Dosage: TAPER
     Route: 048
     Dates: start: 20101008
  3. PROGRAF [Concomitant]
     Indication: RENAL TRANSPLANT
     Dosage: 5 MG, Q12H
     Route: 048
     Dates: start: 20101008

REACTIONS (2)
  - MYOCARDIAL INFARCTION [None]
  - ANAEMIA [None]
